FAERS Safety Report 8200408-2 (Version None)
Quarter: 2012Q1

REPORT INFORMATION
  Report Type: 
  Country: None (occurrence: None)
  Receive Date: 20120312
  Receipt Date: 20120308
  Transmission Date: 20120608
  Serious: Yes (Other)
  Sender: FDA-Public Use
  Company Number: US-PFIZER INC-2012023567

PATIENT
  Sex: Female
  Weight: 65.76 kg

DRUGS (5)
  1. PLAVIX [Concomitant]
     Dosage: UNK
  2. AMITRIPTYLINE [Concomitant]
     Indication: DEPRESSION
     Dosage: 25 MG, DAILY
  3. LIPITOR [Suspect]
     Dosage: 80 MG, DAILY
     Dates: start: 20090101
  4. LIPITOR [Suspect]
     Indication: BLOOD CHOLESTEROL INCREASED
     Dosage: 20 MG, DAILY
  5. LIBRIUM [Concomitant]
     Indication: DEPRESSION
     Dosage: 25 MG, DAILY

REACTIONS (1)
  - HERPES ZOSTER OPHTHALMIC [None]
